FAERS Safety Report 24373301 (Version 1)
Quarter: 2024Q3

REPORT INFORMATION
  Report Type: Spontaneous
  Country: US (occurrence: US)
  Receive Date: 20240927
  Receipt Date: 20240927
  Transmission Date: 20241017
  Serious: No
  Sender: PFIZER
  Company Number: US-PFIZER INC-PV202400122492

PATIENT
  Age: 10 Year
  Sex: Male
  Weight: 31.6 kg

DRUGS (2)
  1. GENOTROPIN [Suspect]
     Active Substance: SOMATROPIN
     Indication: Dwarfism
     Dosage: 1.3 MG, DAILY (NIGHTLY)
     Route: 058
  2. GENOTROPIN [Suspect]
     Active Substance: SOMATROPIN
     Dosage: 3.12 MG, DAILY (NIGHTLY)
     Route: 058

REACTIONS (3)
  - Device dispensing error [Unknown]
  - Drug administered in wrong device [Unknown]
  - Overdose [Unknown]

NARRATIVE: CASE EVENT DATE: 20240608
